FAERS Safety Report 6248526-2 (Version None)
Quarter: 2009Q2

REPORT INFORMATION
  Report Type: 
  Country: None (occurrence: None)
  Receive Date: 20090629
  Receipt Date: 20090619
  Transmission Date: 20091009
  Serious: Yes (Hospitalization)
  Sender: FDA-Public Use
  Company Number: JP-JNJFOC-20090506666

PATIENT
  Sex: Male
  Weight: 41 kg

DRUGS (9)
  1. ITRIZOLE [Suspect]
     Indication: BRONCHOPULMONARY ASPERGILLOSIS
     Route: 048
  2. ITRACONAZOLE [Suspect]
     Route: 042
  3. ITRACONAZOLE [Suspect]
     Indication: BRONCHOPULMONARY ASPERGILLOSIS
     Route: 042
  4. ZOSYN [Suspect]
     Indication: PNEUMONIA
     Route: 042
  5. EBUTOL [Concomitant]
     Route: 048
  6. CLARITHROMYCIN [Concomitant]
     Route: 048
  7. MEXITIL [Concomitant]
     Indication: VENTRICULAR EXTRASYSTOLES
     Route: 048
  8. HARNAL [Concomitant]
     Route: 048
  9. MAGMITT [Concomitant]
     Route: 048

REACTIONS (2)
  - DRUG ERUPTION [None]
  - INTERSTITIAL LUNG DISEASE [None]
